FAERS Safety Report 7296387-5 (Version None)
Quarter: 2011Q1

REPORT INFORMATION
  Report Type: 
  Country: None (occurrence: None)
  Receive Date: 20110216
  Receipt Date: 20110207
  Transmission Date: 20110831
  Serious: Yes (Hospitalization)
  Sender: FDA-Public Use
  Company Number: JP-AMGEN-JPNCT2010008434

PATIENT
  Age: 69 Year
  Sex: Male
  Weight: 44 kg

DRUGS (21)
  1. BLOPRESS [Concomitant]
     Indication: HYPERTENSION
     Route: 048
  2. TAKEPRON [Concomitant]
     Indication: REFLUX OESOPHAGITIS
     Route: 048
  3. CORTICOSTEROIDS [Concomitant]
     Indication: PROPHYLAXIS
     Route: 065
  4. TOPSYM [Concomitant]
     Route: 062
  5. BETAMETHASONE [Concomitant]
     Route: 048
  6. SEROTONE [Concomitant]
     Route: 042
  7. CAMPTOSAR [Concomitant]
     Indication: COLORECTAL CANCER
     Route: 041
     Dates: start: 20101111, end: 20101111
  8. ORGADRONE [Concomitant]
     Route: 042
  9. GOODMIN [Concomitant]
     Route: 048
  10. PHOSBLOCK [Concomitant]
     Route: 048
  11. ONEALFA [Concomitant]
     Route: 048
  12. PANITUMUMAB [Suspect]
     Indication: COLORECTAL CANCER
     Dosage: 6 MG/KG, Q2WK
     Route: 041
     Dates: start: 20101111, end: 20101111
  13. TAKEPRON [Concomitant]
     Route: 048
  14. ANTIHISTAMINES [Concomitant]
     Indication: PROPHYLAXIS
     Route: 065
  15. CORINAEL L [Concomitant]
     Indication: HYPERTENSION
     Route: 048
  16. NORVASC [Concomitant]
     Indication: HYPERTENSION
     Route: 048
  17. BLOPRESS [Concomitant]
     Route: 048
  18. ALESION [Concomitant]
     Route: 048
  19. CHLOKALE [Concomitant]
     Route: 048
  20. HANGE-SHASHIN-TO [Concomitant]
     Indication: DIARRHOEA
     Route: 048
  21. LOPEMIN [Concomitant]
     Route: 048

REACTIONS (1)
  - NEUTROPHIL COUNT DECREASED [None]
